FAERS Safety Report 7041476-3 (Version None)
Quarter: 2010Q4

REPORT INFORMATION
  Report Type: 
  Country: None (occurrence: None)
  Receive Date: 20101013
  Receipt Date: 20091026
  Transmission Date: 20110411
  Serious: No
  Sender: FDA-Public Use
  Company Number: US-ASTRAZENECA-2009SE22650

PATIENT
  Age: 27432 Day
  Sex: Female
  Weight: 52.2 kg

DRUGS (3)
  1. SYMBICORT [Suspect]
     Indication: ASTHMA
     Dosage: 640 UG DAILY
     Route: 055
     Dates: start: 20091012
  2. ALBUTEROL [Concomitant]
  3. MANY OTHER MEDS, NO TIME TO SHARE [Concomitant]

REACTIONS (3)
  - THROAT IRRITATION [None]
  - TONGUE DISCOLOURATION [None]
  - WRONG TECHNIQUE IN DRUG USAGE PROCESS [None]
